FAERS Safety Report 7268745-6 (Version None)
Quarter: 2011Q1

REPORT INFORMATION
  Report Type: 
  Country: None (occurrence: None)
  Receive Date: 20110201
  Receipt Date: 20110128
  Transmission Date: 20110831
  Serious: Yes (Other)
  Sender: FDA-Public Use
  Company Number: US-PFIZER INC-2011020954

PATIENT
  Sex: Female
  Weight: 101 kg

DRUGS (1)
  1. LIPITOR [Suspect]
     Indication: BLOOD CHOLESTEROL INCREASED
     Dosage: 10 MG, DAILY
     Route: 048
     Dates: start: 20000101

REACTIONS (2)
  - INTRA-ABDOMINAL HAEMORRHAGE [None]
  - GASTRIC HAEMORRHAGE [None]
